FAERS Safety Report 10344594 (Version 1)
Quarter: 2014Q3

REPORT INFORMATION
  Report Type: Spontaneous
  Country: US (occurrence: US)
  Receive Date: 20140728
  Receipt Date: 20140728
  Transmission Date: 20150326
  Serious: No
  Sender: FDA-Public Use
  Company Number: 2014SP002560

PATIENT

DRUGS (1)
  1. METHOTREXATE [Suspect]
     Active Substance: METHOTREXATE
     Indication: RHEUMATOID ARTHRITIS

REACTIONS (6)
  - Pain [Unknown]
  - Nausea [Unknown]
  - Muscle spasms [Unknown]
  - Sensitivity of teeth [Unknown]
  - Fatigue [Unknown]
  - Weight increased [Unknown]
